FAERS Safety Report 13709843 (Version 1)
Quarter: 2017Q3

REPORT INFORMATION
  Report Type: Spontaneous
  Country: US (occurrence: US)
  Receive Date: 20170703
  Receipt Date: 20170703
  Transmission Date: 20171127
  Serious: Yes (Other)
  Sender: FDA-Public Use
  Company Number: US-TORRENT-00003150

PATIENT
  Age: 43 Year
  Sex: Female

DRUGS (7)
  1. ARIPIPRAZOLE. [Suspect]
     Active Substance: ARIPIPRAZOLE
  2. MORPHINE [Concomitant]
     Active Substance: MORPHINE
  3. VESICARE [Concomitant]
     Active Substance: SOLIFENACIN SUCCINATE
  4. BACLOFEN. [Concomitant]
     Active Substance: BACLOFEN
  5. LYRICA [Concomitant]
     Active Substance: PREGABALIN
  6. LEVOTHYROXINE. [Concomitant]
     Active Substance: LEVOTHYROXINE
  7. NEXIUM [Concomitant]
     Active Substance: ESOMEPRAZOLE MAGNESIUM

REACTIONS (7)
  - Loss of consciousness [Unknown]
  - Off label use [Unknown]
  - Crying [Unknown]
  - Muscle spasms [Unknown]
  - Blood pressure decreased [Unknown]
  - Insomnia [Unknown]
  - Hot flush [Unknown]

NARRATIVE: CASE EVENT DATE: 20170619
